FAERS Safety Report 13032150 (Version 1)
Quarter: 2016Q4

REPORT INFORMATION
  Report Type: Spontaneous
  Country: US (occurrence: US)
  Receive Date: 20161215
  Receipt Date: 20161215
  Transmission Date: 20170207
  Serious: No
  Sender: FDA-Public Use
  Company Number: US-G+W LABS-GW2016US000204

PATIENT

DRUGS (1)
  1. FLUOCINONIDE. [Suspect]
     Active Substance: FLUOCINONIDE
     Indication: URTICARIA
     Dosage: 0.05 %, UNK
     Route: 061

REACTIONS (1)
  - Condition aggravated [Unknown]
